FAERS Safety Report 18181115 (Version 1)
Quarter: 2020Q3

REPORT INFORMATION
  Report Type: Spontaneous
  Country: US (occurrence: US)
  Receive Date: 20200821
  Receipt Date: 20200821
  Transmission Date: 20201103
  Serious: No
  Sender: FDA-Public Use
  Company Number: US-SA-2020SA219611

PATIENT

DRUGS (5)
  1. ALLEGRA [Suspect]
     Active Substance: FEXOFENADINE HYDROCHLORIDE
  2. ZYRTEC [Concomitant]
     Active Substance: CETIRIZINE HYDROCHLORIDE
  3. TYLENOL [Concomitant]
     Active Substance: ACETAMINOPHEN
  4. MOTRIN [Concomitant]
     Active Substance: IBUPROFEN
  5. DUPIXENT [Concomitant]
     Active Substance: DUPILUMAB
     Indication: NASAL POLYPS
     Dosage: 300 MG, QOW
     Route: 058
     Dates: start: 20200813

REACTIONS (1)
  - Drug ineffective [Unknown]
